FAERS Safety Report 7328622-9 (Version None)
Quarter: 2011Q1

REPORT INFORMATION
  Report Type: 
  Country: None (occurrence: None)
  Receive Date: 20110303
  Receipt Date: 20110222
  Transmission Date: 20110831
  Serious: Yes (Other)
  Sender: FDA-Public Use
  Company Number: ES-JNJFOC-20110207169

PATIENT
  Age: 28 Year
  Sex: Female

DRUGS (3)
  1. CIPROFLOXACIN [Suspect]
     Route: 065
  2. TAVANIC [Suspect]
     Indication: CYSTIC FIBROSIS
     Route: 065
  3. CIPROFLOXACIN [Suspect]
     Indication: CYSTIC FIBROSIS
     Route: 065

REACTIONS (3)
  - DRUG ERUPTION [None]
  - OFF LABEL USE [None]
  - CROSS SENSITIVITY REACTION [None]
